FAERS Safety Report 9038493 (Version 2)
Quarter: 2013Q1

REPORT INFORMATION
  Report Type: Report from Study
  Country: FR (occurrence: FR)
  Receive Date: 20130129
  Receipt Date: 20130130
  Transmission Date: 20140127
  Serious: Yes (Hospitalization)
  Sender: FDA-Public Use
  Company Number: FR-ABBOTT-12P-056-1029266-00

PATIENT
  Sex: Female

DRUGS (2)
  1. HUMIRA [Suspect]
     Indication: ANKYLOSING SPONDYLITIS
     Dates: start: 201210
  2. HUMIRA [Suspect]
     Indication: CROHN^S DISEASE

REACTIONS (2)
  - Crohn^s disease [Recovering/Resolving]
  - Therapeutic response increased [Unknown]
